FAERS Safety Report 14891653 (Version 1)
Quarter: 2018Q2

REPORT INFORMATION
  Report Type: Spontaneous
  Country: US (occurrence: US)
  Receive Date: 20180514
  Receipt Date: 20180514
  Transmission Date: 20180711
  Serious: No
  Sender: FDA-Public Use
  Company Number: US-UNITED THERAPEUTICS-UNT-2018-001133

PATIENT
  Sex: Male

DRUGS (1)
  1. REMODULIN [Suspect]
     Active Substance: TREPROSTINIL
     Indication: PULMONARY ARTERIAL HYPERTENSION
     Dosage: 0.05060 ?G/KG, CONTINUING
     Route: 058
     Dates: start: 20180122

REACTIONS (10)
  - Pruritus [Unknown]
  - Radial pulse abnormal [Unknown]
  - Pulse abnormal [Unknown]
  - Capillary nail refill test [Unknown]
  - Infusion site pain [Recovering/Resolving]
  - Ocular hyperaemia [Unknown]
  - Infusion site swelling [Unknown]
  - Blood pressure abnormal [Unknown]
  - Skin discolouration [Unknown]
  - Epistaxis [Recovered/Resolved]

NARRATIVE: CASE EVENT DATE: 20180122
